FAERS Safety Report 7195070-4 (Version None)
Quarter: 2010Q4

REPORT INFORMATION
  Report Type: 
  Country: None (occurrence: None)
  Receive Date: 20101223
  Receipt Date: 20101217
  Transmission Date: 20110411
  Serious: Yes (Hospitalization, Disabling)
  Sender: FDA-Public Use
  Company Number: US-GILEAD-2010-0033831

PATIENT
  Sex: Female

DRUGS (22)
  1. LETAIRIS [Suspect]
     Indication: PULMONARY ARTERIAL HYPERTENSION
     Route: 048
     Dates: start: 20100927, end: 20101209
  2. FENTANYL [Suspect]
  3. ASPIRIN [Concomitant]
  4. VALSARTAN [Concomitant]
  5. BUMETANIDE [Concomitant]
  6. FUROSEMIDE [Concomitant]
  7. ALBUTEROL [Concomitant]
  8. BUDESONIDE-FORMOTEROL FUMARATE [Concomitant]
  9. DEXLANSOPRAZOLE [Concomitant]
  10. PREDNISONE [Concomitant]
  11. ACETAMINOPHEN AND HYDROCODONE BITARTRATE [Concomitant]
  12. BACLOFEN [Concomitant]
  13. METHOTREXATE [Concomitant]
  14. HYDROXYCHLOROQUINE [Concomitant]
  15. PROMETHAZINE [Concomitant]
  16. PREGABALIN [Concomitant]
  17. CITALOPRAM HYDROBROMIDE [Concomitant]
  18. DIAZEPAM [Concomitant]
  19. GUAIFENESIN [Concomitant]
  20. GUAIFENESIN-CODEINE [Concomitant]
  21. FOLIC ACID [Concomitant]
  22. CALCIUM CARBONATE-VITAMIN D [Concomitant]

REACTIONS (4)
  - DIARRHOEA [None]
  - DYSPNOEA [None]
  - FATIGUE [None]
  - MYOCLONUS [None]
